FAERS Safety Report 5107494-7 (Version None)
Quarter: 2006Q3

REPORT INFORMATION
  Report Type: 
  Country: None (occurrence: None)
  Receive Date: 20060913
  Receipt Date: 20060913
  Transmission Date: 20061208
  Serious: Yes (Other)
  Sender: FDA-Public Use
  Company Number: None

PATIENT
  Age: 61 Year
  Sex: Male
  Weight: 99.7913 kg

DRUGS (5)
  1. LUNESTA [Suspect]
     Indication: INSOMNIA
     Dosage: 3 MG
     Dates: start: 20060822
  2. ATENOLOL [Concomitant]
  3. CARDURA [Concomitant]
  4. AVODART [Concomitant]
  5. ENALAPRIL [Concomitant]

REACTIONS (3)
  - BRADYCARDIA [None]
  - FATIGUE [None]
  - LETHARGY [None]
